FAERS Safety Report 10014975 (Version 2)
Quarter: 2014Q1

REPORT INFORMATION
  Report Type: Spontaneous
  Country: JP (occurrence: JP)
  Receive Date: 20140317
  Receipt Date: 20140327
  Transmission Date: 20141002
  Serious: Yes (Hospitalization)
  Sender: FDA-Public Use
  Company Number: JP-B.I. PHARMACEUTICALS,INC./RIDGEFIELD-2014-BI-11330GD

PATIENT
  Age: 63 Year
  Sex: Male

DRUGS (6)
  1. PRADAXA [Suspect]
     Indication: ATRIAL FIBRILLATION
     Route: 048
  2. ASPIRIN [Suspect]
     Indication: PRODUCT USED FOR UNKNOWN INDICATION
     Route: 048
  3. GLIMEPIRIDE [Concomitant]
     Route: 048
  4. ALOGLIPTIN BENZOATE [Concomitant]
     Route: 048
  5. ENALAPRIL MALEATE [Concomitant]
     Route: 048
  6. MAGNESIUM OXIDE [Concomitant]
     Route: 048

REACTIONS (5)
  - Haematochezia [Recovered/Resolved]
  - Haemorrhage [Unknown]
  - Colitis ischaemic [Unknown]
  - Large intestinal stenosis [Unknown]
  - Intestinal mass [Unknown]
